FAERS Safety Report 7381108-8 (Version None)
Quarter: 2011Q1

REPORT INFORMATION
  Report Type: 
  Country: None (occurrence: None)
  Receive Date: 20110329
  Receipt Date: 20100708
  Transmission Date: 20110831
  Serious: Yes (Other)
  Sender: FDA-Public Use
  Company Number: US-AMGEN-QUU423007

PATIENT
  Age: 55 Year
  Sex: Male

DRUGS (25)
  1. SENSIPAR [Suspect]
     Indication: HYPERPARATHYROIDISM SECONDARY
     Dosage: 30 MG, TID
     Dates: end: 20100707
  2. SERTRALINE HYDROCHLORIDE [Concomitant]
     Dosage: UNK UNK, UNK
  3. ASPIRIN [Concomitant]
     Dosage: UNK UNK, UNK
  4. COLCHICINE [Concomitant]
     Dosage: UNK UNK, UNK
  5. ESOMEPRAZOLE MAGNESIUM [Concomitant]
     Dosage: UNK UNK, UNK
  6. TEMAZEPAM [Concomitant]
     Dosage: UNK UNK, UNK
  7. MIRALAX [Concomitant]
     Dosage: UNK UNK, UNK
  8. DIPHENHYDRAMINE HYDROCHLORIDE [Concomitant]
     Dosage: UNK UNK, UNK
  9. PARICALCITOL [Concomitant]
     Dosage: UNK UNK, UNK
  10. PROMETHAZINE HYDROCHLORIDE [Concomitant]
     Dosage: UNK UNK, UNK
  11. SEVELAMER [Concomitant]
     Dosage: UNK UNK, UNK
  12. MULTIVITAMIN [Concomitant]
     Dosage: UNK UNK, UNK
  13. ISOSORBIDE MONONITRATE [Concomitant]
     Dosage: UNK UNK, UNK
  14. GLYCERYL TRINITRATE [Concomitant]
     Dosage: UNK UNK, UNK
  15. METHADONE [Concomitant]
     Dosage: UNK UNK, UNK
  16. URSODIOL [Concomitant]
     Dosage: UNK UNK, UNK
  17. ATENOLOL [Concomitant]
     Dosage: UNK UNK, UNK
  18. ERGOCALCIFEROL [Concomitant]
     Dosage: UNK UNK, UNK
  19. GEMFIBROZIL [Concomitant]
     Dosage: UNK UNK, UNK
  20. TOLTERODINE TARTRATE [Concomitant]
     Dosage: UNK UNK, UNK
  21. DOCUSATE SODIUM [Concomitant]
     Dosage: UNK UNK, UNK
  22. EMLA [Concomitant]
     Dosage: UNK UNK, UNK
  23. ALPRAZOLAM [Concomitant]
     Dosage: UNK UNK, UNK
  24. SALBUTAMOL [Concomitant]
     Dosage: UNK UNK, UNK
  25. ACETAMINOPHEN AND HYDROCODONE BITARTRATE [Concomitant]
     Dosage: UNK UNK, UNK

REACTIONS (1)
  - ARRHYTHMIA [None]
